FAERS Safety Report 4348459-2 (Version None)
Quarter: 2004Q2

REPORT INFORMATION
  Report Type: 
  Country: None (occurrence: None)
  Receive Date: 20040422
  Receipt Date: 20040413
  Transmission Date: 20050107
  Serious: Yes (Hospitalization)
  Sender: FDA-Public Use
  Company Number: 2004-04-0586

PATIENT
  Age: 49 Year
  Sex: Female

DRUGS (4)
  1. RINDERON INJECTABLE SOLUTION  ^LIKE CELESTONE PHOSPHATE^ [Suspect]
     Indication: URTICARIA
     Dosage: 2 MG INTRAVENOUS
     Route: 042
     Dates: start: 20040311, end: 20040312
  2. RINDERON INJECTABLE SOLUTION  ^LIKE CELESTONE PHOSPHATE^ [Suspect]
     Indication: URTICARIA
     Dosage: 2 MG INTRAVENOUS
     Route: 042
     Dates: start: 20040315, end: 20040315
  3. RINDERON TABLETS [Suspect]
     Indication: URTICARIA
     Dosage: 1 MG, ORAL
     Route: 048
     Dates: start: 20040311, end: 20040315
  4. MONOAMMONIUM GLYCYRRHIZINATE [Concomitant]

REACTIONS (4)
  - ERYTHEMA [None]
  - HYPOAESTHESIA [None]
  - PRURITUS [None]
  - PURPURA [None]
